FAERS Safety Report 5685022-5 (Version None)
Quarter: 2008Q1

REPORT INFORMATION
  Report Type: 
  Country: None (occurrence: None)
  Receive Date: 20080328
  Receipt Date: 19971202
  Transmission Date: 20080703
  Serious: Yes (Death, Hospitalization)
  Sender: FDA-Public Use
  Company Number: FR-ROCHE-91200

PATIENT
  Age: 70 Year
  Sex: Female

DRUGS (3)
  1. ROCEPHIN [Suspect]
     Indication: URINARY TRACT INFECTION
     Route: 030
     Dates: start: 19970915, end: 19971007
  2. ROCEPHIN [Suspect]
     Route: 042
  3. FLAGYL [Concomitant]
     Route: 048

REACTIONS (2)
  - CLOSTRIDIUM DIFFICILE COLITIS [None]
  - DEATH [None]
